FAERS Safety Report 10329326 (Version 1)
Quarter: 2014Q3

REPORT INFORMATION
  Report Type: Spontaneous
  Country: US (occurrence: None)
  Receive Date: 20140718
  Receipt Date: 20140718
  Transmission Date: 20150326
  Serious: No
  Sender: FDA-Public Use
  Company Number: None

PATIENT
  Age: 36 Year
  Sex: Female
  Weight: 72.58 kg

DRUGS (1)
  1. OXYCODONE/APAP 5/325 ACTAVIS [Suspect]
     Active Substance: ACETAMINOPHEN\OXYCODONE HYDROCHLORIDE
     Indication: PAIN
     Dosage: 1 TABLET
     Route: 048
     Dates: start: 20140716, end: 20140717

REACTIONS (1)
  - Drug ineffective [None]
